FAERS Safety Report 10358346 (Version 3)
Quarter: 2015Q1

REPORT INFORMATION
  Report Type: Spontaneous
  Country: PT (occurrence: PT)
  Receive Date: 20140801
  Receipt Date: 20150325
  Transmission Date: 20150720
  Serious: Yes (Life-Threatening, Other)
  Sender: FDA-Public Use
  Company Number: PT-009507513-1407PRT013047

PATIENT
  Age: 62 Year
  Sex: Male
  Weight: 83 kg

DRUGS (11)
  1. VICTRELIS [Suspect]
     Active Substance: BOCEPREVIR
     Indication: HEPATITIS C VIRUS TEST POSITIVE
     Dosage: 2400 MG
     Route: 048
     Dates: start: 20130402, end: 20131016
  2. SERENAL (OXAZEPAM) [Concomitant]
     Indication: ANXIETY
     Dosage: 1 DF, PRN, TO A MAXIMUM OF 3X/DAY
     Route: 048
     Dates: start: 20130306
  3. ACETAMINOPHEN. [Concomitant]
     Active Substance: ACETAMINOPHEN
     Indication: PRODUCT USED FOR UNKNOWN INDICATION
     Dosage: 1 G, PRN
     Route: 065
  4. VENLAFAXINE HYDROCHLORIDE. [Concomitant]
     Active Substance: VENLAFAXINE HYDROCHLORIDE
     Indication: DEPRESSION
     Dosage: 37.5 MG, QD
     Route: 048
     Dates: start: 20130327
  5. COPEGUS [Interacting]
     Active Substance: RIBAVIRIN
     Indication: HEPATITIS C VIRUS TEST POSITIVE
     Dosage: 1000 MG, QD
     Route: 048
     Dates: start: 20130306, end: 20140204
  6. COPEGUS [Interacting]
     Active Substance: RIBAVIRIN
     Indication: HEPATITIS C VIRUS TEST POSITIVE
  7. ATARAX [Concomitant]
     Active Substance: HYDROXYZINE\HYDROXYZINE HYDROCHLORIDE
     Indication: PRURITUS
     Dosage: 1 DF, QD
     Route: 048
     Dates: start: 20130402, end: 20130424
  8. PEGASYS [Interacting]
     Active Substance: PEGINTERFERON ALFA-2A
     Indication: HEPATITIS C VIRUS TEST POSITIVE
     Dosage: 1 DF, QW
     Route: 058
     Dates: start: 20130306, end: 20140129
  9. DIPROSONE [Concomitant]
     Active Substance: BETAMETHASONE DIPROPIONATE
     Indication: DRY SKIN
     Dosage: 1 DF, UNK
     Route: 003
     Dates: start: 20130402
  10. NEUPOGEN [Concomitant]
     Active Substance: FILGRASTIM
     Indication: NEUTROPENIA
     Dosage: 1 DF, QW
     Route: 065
     Dates: start: 20130320, end: 20140205
  11. PEGASYS [Interacting]
     Active Substance: PEGINTERFERON ALFA-2A
     Indication: HEPATITIS C VIRUS TEST POSITIVE

REACTIONS (12)
  - Blister [Recovered/Resolved]
  - Affect lability [Recovered/Resolved]
  - Anaemia [Recovered/Resolved]
  - Skin lesion [Recovered/Resolved]
  - Skin ulcer [Recovered/Resolved]
  - Dermatitis [Recovered/Resolved]
  - Depression [Recovered/Resolved]
  - Thrombocytopenia [Recovered/Resolved]
  - Condition aggravated [Recovered/Resolved]
  - Mucosal dryness [Recovered/Resolved]
  - Libido disorder [Recovered/Resolved]
  - Skin wound [Recovered/Resolved]

NARRATIVE: CASE EVENT DATE: 201304
